FAERS Safety Report 5022555-9 (Version None)
Quarter: 2006Q2

REPORT INFORMATION
  Report Type: 
  Country: None (occurrence: None)
  Receive Date: 20060605
  Receipt Date: 20060519
  Transmission Date: 20061013
  Serious: Yes (Hospitalization)
  Sender: FDA-Public Use
  Company Number: HU200605004022

PATIENT
  Age: 61 Year
  Sex: Male
  Weight: 70 kg

DRUGS (11)
  1. GEMZAR [Suspect]
     Indication: PANCREATIC CARCINOMA
     Dosage: 1800 MG, WEEKLY (1/W), INTRAVENOUS
     Route: 042
     Dates: start: 20060426
  2. GEMZAR [Suspect]
     Indication: PANCREATIC CARCINOMA
     Dosage: 1800 MG, WEEKLY (1/W), INTRAVENOUS
     Route: 042
     Dates: start: 20060503
  3. TRIMETAZIDINE (TRIMETAZIDINE) [Concomitant]
  4. DICLOFENAC (DICLOFENAC) [Concomitant]
  5. PRAMIDIN /ITA/ (METOCLOPRAMIDE) [Concomitant]
  6. NADROPARIN CALCIUM (NADROPARIN CALCIUM) [Concomitant]
  7. DOMPERIDONE (DOMPERIDONE) [Concomitant]
  8. PACREATIN (PANCREATIN) [Concomitant]
  9. FAMOTIDINE (RAMOTIDINE) [Concomitant]
  10. MEPROBAMATE [Concomitant]
  11. FERROUS SULFATE TAB [Concomitant]

REACTIONS (2)
  - OEDEMA PERIPHERAL [None]
  - PERICARDIAL EFFUSION [None]
